FAERS Safety Report 14586394 (Version 1)
Quarter: 2018Q1

REPORT INFORMATION
  Report Type: Spontaneous
  Country: US (occurrence: US)
  Receive Date: 20180227
  Receipt Date: 20180227
  Transmission Date: 20180509
  Serious: Yes (Disabling)
  Sender: FDA-Public Use
  Company Number: None

PATIENT
  Age: 66 Year
  Sex: Female
  Weight: 63.9 kg

DRUGS (12)
  1. EST. PATCH [Concomitant]
  2. PROJ [Concomitant]
  3. AMBIEN [Concomitant]
     Active Substance: ZOLPIDEM TARTRATE
  4. ANTIHISTAMINE [Concomitant]
     Active Substance: ANTIHISTAMINES NOS
  5. T4 [Concomitant]
     Active Substance: LEVOTHYROXINE
  6. FISH OIL [Concomitant]
     Active Substance: FISH OIL
  7. RADIO ACTIVE IODINE [Suspect]
     Active Substance: SODIUM IODIDE I-131
     Indication: BASEDOW^S DISEASE
     Dosage: ONE TIME PILL; ORAL
     Route: 048
     Dates: start: 19770101, end: 19770101
  8. T3 [Concomitant]
     Active Substance: LIOTHYRONINE SODIUM
  9. KETOTIFEN [Concomitant]
     Active Substance: KETOTIFEN
  10. VITAMIN D [Concomitant]
     Active Substance: CHOLECALCIFEROL
  11. NDT [Concomitant]
  12. NASONEX [Concomitant]
     Active Substance: MOMETASONE FUROATE

REACTIONS (9)
  - Premature menopause [None]
  - Oestrogen deficiency [None]
  - Ovarian injury [None]
  - Dry mouth [None]
  - Nasal dryness [None]
  - Osteopenia [None]
  - Gastric disorder [None]
  - Gastrointestinal injury [None]
  - Dry eye [None]

NARRATIVE: CASE EVENT DATE: 19770101
